FAERS Safety Report 6370004-0 (Version None)
Quarter: 2009Q3

REPORT INFORMATION
  Report Type: 
  Country: None (occurrence: None)
  Receive Date: 20090923
  Receipt Date: 20070501
  Transmission Date: 20100115
  Serious: No
  Sender: FDA-Public Use
  Company Number: US-ASTRAZENECA-2005UW12391

PATIENT
  Age: 56 Year
  Sex: Female
  Weight: 94.3 kg

DRUGS (35)
  1. SEROQUEL [Suspect]
     Indication: SCHIZOPHRENIA
     Route: 048
     Dates: start: 20000101
  2. SEROQUEL [Suspect]
     Indication: DEPRESSION
     Route: 048
     Dates: start: 20000101
  3. SEROQUEL [Suspect]
     Indication: PANIC DISORDER
     Route: 048
     Dates: start: 20000101
  4. SEROQUEL [Suspect]
     Dosage: 25 MG-600 MG
     Route: 048
     Dates: start: 19990128
  5. SEROQUEL [Suspect]
     Dosage: 25 MG-600 MG
     Route: 048
     Dates: start: 19990128
  6. SEROQUEL [Suspect]
     Dosage: 25 MG-600 MG
     Route: 048
     Dates: start: 19990128
  7. ZYPREXA [Suspect]
  8. GLUCOPHAGE [Concomitant]
     Dosage: 500 MG TWO TABS TWICE A DAY
     Route: 048
  9. CYMBALTA [Concomitant]
     Route: 048
  10. XANAX [Concomitant]
     Route: 048
  11. DIOVAN [Concomitant]
     Route: 048
  12. ACIPHEX [Concomitant]
     Route: 048
  13. ABILIFY [Concomitant]
     Route: 048
  14. GEODON [Concomitant]
     Dosage: 80 MG ONE AT NIGHT
     Route: 048
  15. RISPERDAL [Concomitant]
     Route: 048
  16. ATIVAN [Concomitant]
     Route: 048
  17. TOFRANIL [Concomitant]
     Route: 048
  18. LIPITOR [Concomitant]
     Route: 048
  19. PREMPRO [Concomitant]
     Route: 065
  20. CELEXA [Concomitant]
     Route: 048
  21. PEXEVA [Concomitant]
     Route: 048
  22. KLONOPIN [Concomitant]
     Route: 048
  23. FLUOXETINE HCL [Concomitant]
     Route: 065
  24. AMBIEN [Concomitant]
     Route: 065
  25. AVANDIA [Concomitant]
     Route: 048
  26. COMBIVENT [Concomitant]
     Route: 065
  27. HYDROCODONE BITARTRATE [Concomitant]
     Route: 065
  28. CYCLOBENZAPRINE HCL [Concomitant]
     Dosage: 10 MG HALF TAB TWO TIMES A DAY
     Route: 048
  29. WELLBUTRIN [Concomitant]
     Route: 048
  30. ZOCOR [Concomitant]
     Route: 048
  31. ZETIA [Concomitant]
     Route: 048
  32. LEXAPRO [Concomitant]
     Route: 048
  33. AMARYL [Concomitant]
     Route: 048
  34. EFFEXOR [Concomitant]
     Route: 048
  35. TRAZODONE HYDROCHLORIDE [Concomitant]
     Route: 048

REACTIONS (11)
  - BACK PAIN [None]
  - CHEST PAIN [None]
  - CHRONIC OBSTRUCTIVE PULMONARY DISEASE [None]
  - DIABETES MELLITUS [None]
  - DYSPNOEA [None]
  - HEPATIC STEATOSIS [None]
  - HYPERLIPIDAEMIA [None]
  - HYPERTENSION [None]
  - OBSESSIVE-COMPULSIVE DISORDER [None]
  - TYPE 2 DIABETES MELLITUS [None]
  - WEIGHT INCREASED [None]
